FAERS Safety Report 12623636 (Version 1)
Quarter: 2016Q3

REPORT INFORMATION
  Report Type: Spontaneous
  Country: US (occurrence: US)
  Receive Date: 20160804
  Receipt Date: 20160804
  Transmission Date: 20161109
  Serious: No
  Sender: FDA-Public Use
  Company Number: US-JAZZ-JPI-P-003668

PATIENT
  Age: 54 Year
  Sex: Female
  Weight: 43.18 kg

DRUGS (5)
  1. ZIPRASIDONE. [Concomitant]
     Active Substance: ZIPRASIDONE
     Indication: PRODUCT USED FOR UNKNOWN INDICATION
     Dosage: UNK, SINGLE
  2. XYREM [Suspect]
     Active Substance: SODIUM OXYBATE
     Dosage: 4 G, BID
     Route: 048
  3. XYREM [Suspect]
     Active Substance: SODIUM OXYBATE
     Indication: SOMNOLENCE
     Dosage: DOSE ADJUSTMENTS
     Route: 048
  4. AMPHETAMINE MIXED SALTS [Concomitant]
     Active Substance: AMPHETAMINE ASPARTATE\AMPHETAMINE SULFATE\DEXTROAMPHETAMINE SACCHARATE\DEXTROAMPHETAMINE SULFATE
     Indication: PRODUCT USED FOR UNKNOWN INDICATION
     Dosage: UNK, SINGLE
  5. XYREM [Suspect]
     Active Substance: SODIUM OXYBATE
     Indication: SLEEP ATTACKS
     Dosage: 3 G, BID
     Route: 048
     Dates: start: 20070215, end: 200704

REACTIONS (9)
  - Erythromelalgia [Not Recovered/Not Resolved]
  - Dyskinesia [Not Recovered/Not Resolved]
  - Musculoskeletal pain [Unknown]
  - Balance disorder [Unknown]
  - Burning sensation [Not Recovered/Not Resolved]
  - Body temperature decreased [Not Recovered/Not Resolved]
  - Fall [Recovered/Resolved]
  - Raynaud^s phenomenon [Unknown]
  - Erythema [Unknown]

NARRATIVE: CASE EVENT DATE: 200702
